FAERS Safety Report 5218707-5 (Version None)
Quarter: 2007Q1

REPORT INFORMATION
  Report Type: 
  Country: None (occurrence: None)
  Receive Date: 20070122
  Receipt Date: 20070110
  Transmission Date: 20070707
  Serious: Yes (Other)
  Sender: FDA-Public Use
  Company Number: 2007SP000817

PATIENT
  Age: 55 Year
  Sex: Female

DRUGS (4)
  1. CLARITIN-D 24 HOUR [Suspect]
     Indication: NASOPHARYNGITIS
     Dosage: 0.5 DF;ONCE;PO
     Route: 048
     Dates: start: 20070105, end: 20070105
  2. CLARITIN-D 24 HOUR [Suspect]
     Indication: RHINORRHOEA
     Dosage: 0.5 DF;ONCE;PO
     Route: 048
     Dates: start: 20070105, end: 20070105
  3. DEPAKOTE (CON.) [Concomitant]
  4. HALDOL (CON.) [Concomitant]

REACTIONS (8)
  - ASTHENIA [None]
  - DEHYDRATION [None]
  - DISORIENTATION [None]
  - HYPERSENSITIVITY [None]
  - MEDICATION ERROR [None]
  - NAUSEA [None]
  - PYREXIA [None]
  - TACHYCARDIA [None]
